FAERS Safety Report 24005062 (Version 2)
Quarter: 2024Q3

REPORT INFORMATION
  Report Type: Spontaneous
  Country: BR (occurrence: BR)
  Receive Date: 20240624
  Receipt Date: 20240710
  Transmission Date: 20241017
  Serious: Yes (Death, Other)
  Sender: MERCK
  Company Number: BR-009507513-2406BRA006857

PATIENT
  Age: 16 Year
  Sex: Male

DRUGS (1)
  1. LETERMOVIR [Suspect]
     Active Substance: LETERMOVIR
     Dosage: 480 MG; FREQUENCY 1 CAPSULE/DAY FOR 100 DAYS
     Route: 048

REACTIONS (2)
  - Death [Fatal]
  - Product administered to patient of inappropriate age [Unknown]
